FAERS Safety Report 5917728-4 (Version None)
Quarter: 2008Q4

REPORT INFORMATION
  Report Type: 
  Country: None (occurrence: None)
  Receive Date: 20081014
  Receipt Date: 20081003
  Transmission Date: 20090506
  Serious: Yes (Hospitalization)
  Sender: FDA-Public Use
  Company Number: US-BRACCO-001939

PATIENT
  Sex: Female

DRUGS (4)
  1. MULTIHANCE [Suspect]
     Indication: NUCLEAR MAGNETIC RESONANCE IMAGING BRAIN
     Route: 042
     Dates: start: 20080929, end: 20080929
  2. MULTIHANCE [Suspect]
     Indication: HEADACHE
     Route: 042
     Dates: start: 20080929, end: 20080929
  3. MULTIHANCE [Suspect]
     Indication: ATAXIA
     Route: 042
     Dates: start: 20080929, end: 20080929
  4. OXYGEN [Concomitant]
     Route: 065
     Dates: start: 20080929, end: 20080929

REACTIONS (2)
  - LOSS OF CONSCIOUSNESS [None]
  - UNRESPONSIVE TO STIMULI [None]
